FAERS Safety Report 6171861-3 (Version None)
Quarter: 2009Q2

REPORT INFORMATION
  Report Type: 
  Country: None (occurrence: None)
  Receive Date: 20090429
  Receipt Date: 20090423
  Transmission Date: 20091009
  Serious: Yes (Life-Threatening)
  Sender: FDA-Public Use
  Company Number: FR-CELGENEUS-056-20785-09040973

PATIENT
  Age: 69 Year
  Sex: Female

DRUGS (6)
  1. THALIDOMIDE [Suspect]
     Indication: MULTIPLE MYELOMA
     Route: 048
     Dates: start: 20080901
  2. MELPHALAN [Concomitant]
     Indication: MULTIPLE MYELOMA
     Route: 048
     Dates: start: 20050901, end: 20081201
  3. PREDNISONE [Concomitant]
     Indication: MULTIPLE MYELOMA
     Route: 048
     Dates: start: 20050901, end: 20081201
  4. SOPHIDONE [Concomitant]
     Indication: PAIN
     Route: 048
     Dates: start: 20050101
  5. LYRICA [Concomitant]
     Indication: PAIN
     Route: 065
     Dates: start: 20050101
  6. RIVOTRIL [Concomitant]
     Indication: PAIN
     Route: 048
     Dates: start: 20050101

REACTIONS (3)
  - LOBAR PNEUMONIA [None]
  - SEPSIS [None]
  - SEPTIC SHOCK [None]
